FAERS Safety Report 22978099 (Version 4)
Quarter: 2024Q2

REPORT INFORMATION
  Report Type: Spontaneous
  Country: US (occurrence: US)
  Receive Date: 20230925
  Receipt Date: 20240603
  Transmission Date: 20240715
  Serious: Yes (Other)
  Sender: FDA-Public Use
  Company Number: US-PFIZER INC-202300302094

PATIENT
  Age: 11 Year
  Sex: Male

DRUGS (1)
  1. OXBRYTA [Suspect]
     Active Substance: VOXELOTOR
     Dosage: UNK
     Dates: end: 202404

REACTIONS (3)
  - Sickle cell disease [Unknown]
  - Sickle cell anaemia with crisis [Unknown]
  - Product dose omission issue [Unknown]
